FAERS Safety Report 5967934-8 (Version None)
Quarter: 2008Q4

REPORT INFORMATION
  Report Type: 
  Country: None (occurrence: None)
  Receive Date: 20081126
  Receipt Date: 20081120
  Transmission Date: 20090506
  Serious: Yes (Other)
  Sender: FDA-Public Use
  Company Number: US-ASTRAZENECA-2008UW26093

PATIENT
  Sex: Female
  Weight: 74.4 kg

DRUGS (6)
  1. CRESTOR [Suspect]
     Indication: BLOOD CHOLESTEROL INCREASED
     Route: 048
     Dates: start: 20070401, end: 20081001
  2. THYROID TAB [Concomitant]
  3. LOPRESSOR [Concomitant]
  4. DIOVAN [Concomitant]
  5. LASIX [Concomitant]
  6. INSULIN [Concomitant]

REACTIONS (5)
  - DRUG INEFFECTIVE [None]
  - FATIGUE [None]
  - MYALGIA [None]
  - MYOCARDIAL INFARCTION [None]
  - WEIGHT INCREASED [None]
